FAERS Safety Report 14631140 (Version 7)
Quarter: 2023Q2

REPORT INFORMATION
  Report Type: Report from Study
  Country: JP (occurrence: JP)
  Receive Date: 20180313
  Receipt Date: 20230426
  Transmission Date: 20230722
  Serious: Yes (Disabling, Other)
  Sender: FDA-Public Use
  Company Number: JP-SA-2017SA206584

PATIENT
  Age: 60 Year
  Sex: Male
  Weight: 64 kg

DRUGS (23)
  1. VANDETANIB [Suspect]
     Active Substance: VANDETANIB
     Indication: Medullary thyroid cancer
     Dosage: 300 MG, QD
     Route: 048
     Dates: start: 20170831, end: 20171015
  2. VANDETANIB [Suspect]
     Active Substance: VANDETANIB
     Dosage: 200 MG, QD
     Route: 048
     Dates: start: 20171016, end: 20171119
  3. VANDETANIB [Suspect]
     Active Substance: VANDETANIB
     Dosage: 100 MG, QD
     Route: 048
     Dates: start: 20180808, end: 20180925
  4. VANDETANIB [Suspect]
     Active Substance: VANDETANIB
     Dosage: 100 MG, QD
     Route: 048
     Dates: start: 20181004
  5. PYRIDOXAL [Concomitant]
     Active Substance: PYRIDOXAL
     Indication: Prophylaxis
     Dosage: 60 MG, QD
     Route: 048
     Dates: start: 20170831, end: 20171119
  6. LOXOPROFEN SODIUM [Concomitant]
     Active Substance: LOXOPROFEN SODIUM
     Indication: Cancer pain
     Dosage: 180 MG, QD
     Route: 048
  7. LOXOPROFEN SODIUM [Concomitant]
     Active Substance: LOXOPROFEN SODIUM
     Indication: Back pain
     Dosage: 1 SHEET
     Route: 061
     Dates: start: 20180911
  8. REBAMIPIDE [Concomitant]
     Active Substance: REBAMIPIDE
     Indication: Peptic ulcer
     Dosage: 300 MG, QD
     Route: 048
  9. REBAMIPIDE [Concomitant]
     Active Substance: REBAMIPIDE
     Indication: Prophylaxis against gastrointestinal ulcer
  10. GLYBURIDE [Concomitant]
     Active Substance: GLYBURIDE
     Indication: Diabetes mellitus
     Dosage: 2.5 MG, QD
     Route: 048
  11. SITAGLIPTIN [Concomitant]
     Active Substance: SITAGLIPTIN
     Indication: Diabetes mellitus
     Dosage: 50 MG, QD
     Route: 048
  12. TIMOLOL MALEATE\TRAVOPROST [Concomitant]
     Active Substance: TIMOLOL MALEATE\TRAVOPROST
     Indication: Glaucoma
     Dosage: APPROPRIATE DOSE/DAY
     Route: 047
  13. LEVOTHYROXINE SODIUM [Concomitant]
     Active Substance: LEVOTHYROXINE SODIUM
     Indication: Hypothyroidism
     Dosage: 100 MG, QD
     Route: 048
  14. AZILSARTAN KAMEDOXOMIL [Concomitant]
     Active Substance: AZILSARTAN KAMEDOXOMIL
     Indication: Hypertension
     Dosage: DAILY DOSE: 1 DF
     Route: 048
     Dates: end: 20181119
  15. AZILSARTAN KAMEDOXOMIL [Concomitant]
     Active Substance: AZILSARTAN KAMEDOXOMIL
     Indication: Cancer pain
     Dosage: DAILY DOSE: 2 DF
     Route: 048
     Dates: start: 20181120
  16. ALLELOCK [Concomitant]
     Active Substance: OLOPATADINE HYDROCHLORIDE
     Indication: Hypersensitivity
     Dosage: DAILY DOSE: 2 DF
     Route: 048
  17. OXYCODONE HYDROCHLORIDE [Concomitant]
     Active Substance: OXYCODONE HYDROCHLORIDE
     Indication: Cancer pain
     Dosage: DAILY DOSE: 2 DF
     Route: 048
  18. CALONAL [Concomitant]
     Active Substance: ACETAMINOPHEN
     Indication: Cancer pain
     Dosage: AS NEEDED
     Route: 048
  19. LYRICA [Concomitant]
     Active Substance: PREGABALIN
     Indication: Neuralgia
     Dosage: DAILY DOSE: 2 DF
     Route: 048
  20. ACONITUM SPP. PROCESSED ROOT [Concomitant]
     Indication: Hypoaesthesia
     Dosage: DAILY DOSE: 3 G
     Route: 048
     Dates: end: 20181210
  21. ACONITUM SPP. PROCESSED ROOT [Concomitant]
     Dosage: DAILY DOSE: 4 G
     Route: 048
     Dates: start: 20181211
  22. HERBALS [Concomitant]
     Active Substance: HERBALS
     Indication: Hypoaesthesia
     Dosage: DAILY DOSE: 2 PACKS
     Route: 048
     Dates: end: 20181006
  23. GOREISAN [ALISMA PLANTAGO-AQUATICA SUBSP. ORIENTALE TUBER;ATRACTYLODES [Concomitant]
     Indication: Hypoaesthesia
     Dosage: DAILY DOSE: 2 PACKS
     Route: 048
     Dates: end: 20180820

REACTIONS (5)
  - Hemiplegia [Recovering/Resolving]
  - Thalamus haemorrhage [Recovered/Resolved with Sequelae]
  - Hypertension [Recovering/Resolving]
  - Electrocardiogram QT prolonged [Recovered/Resolved]
  - Diarrhoea [Recovered/Resolved]

NARRATIVE: CASE EVENT DATE: 20170914
